FAERS Safety Report 8882304 (Version 1)
Quarter: 2012Q4

REPORT INFORMATION
  Report Type: Report from Study
  Country: FR (occurrence: FR)
  Receive Date: 20121102
  Receipt Date: 20121102
  Transmission Date: 20130627
  Serious: Yes (Hospitalization)
  Sender: FDA-Public Use
  Company Number: FR-ROCHE-1151196

PATIENT
  Sex: Female
  Weight: 67 kg

DRUGS (12)
  1. MYCOPHENOLATE MOFETIL [Suspect]
     Indication: RENAL TRANSPLANT
     Route: 065
  2. RAPAMUNE [Suspect]
     Indication: RENAL TRANSPLANT
     Route: 048
     Dates: start: 20100917, end: 20121003
  3. FLUDEX [Concomitant]
     Route: 065
     Dates: start: 2008
  4. HYPERIUM [Concomitant]
     Route: 065
     Dates: start: 20081027
  5. ISOPTINE [Concomitant]
     Route: 065
     Dates: start: 2008
  6. TRIATEC [Concomitant]
     Route: 065
     Dates: start: 20080928
  7. LASILIX [Concomitant]
     Route: 065
     Dates: start: 20120314
  8. TAHOR [Concomitant]
     Indication: HYPERCHOLESTEROLAEMIA
     Route: 065
     Dates: start: 20080924
  9. TARDYFERON [Concomitant]
     Route: 065
     Dates: start: 20090204
  10. ZELITREX [Concomitant]
     Route: 065
     Dates: end: 20121003
  11. BACTRIM [Concomitant]
     Route: 065
     Dates: start: 20121003
  12. LEDERFOLINE [Concomitant]
     Route: 065
     Dates: start: 20121003

REACTIONS (1)
  - Kidney transplant rejection [Not Recovered/Not Resolved]
